FAERS Safety Report 8618977-7 (Version None)
Quarter: 2012Q3

REPORT INFORMATION
  Report Type: 
  Country: None (occurrence: None)
  Receive Date: 20120824
  Receipt Date: 20120820
  Transmission Date: 20120928
  Serious: Yes (Other)
  Sender: FDA-Public Use
  Company Number: PHEH2012US016536

PATIENT
  Sex: Female

DRUGS (1)
  1. AREDIA [Suspect]
     Indication: MULTIPLE MYELOMA
     Route: 042

REACTIONS (8)
  - CHEST PAIN [None]
  - COLONIC POLYP [None]
  - RECTAL POLYP [None]
  - PALPITATIONS [None]
  - IRRITABLE BOWEL SYNDROME [None]
  - PAPILLOEDEMA [None]
  - RECTAL HAEMORRHAGE [None]
  - RIB FRACTURE [None]
